FAERS Safety Report 24524515 (Version 1)
Quarter: 2024Q4

REPORT INFORMATION
  Report Type: Spontaneous
  Country: LT (occurrence: LT)
  Receive Date: 20241019
  Receipt Date: 20241019
  Transmission Date: 20250115
  Serious: Yes (Other)
  Sender: ACCORD
  Company Number: LT-MLMSERVICE-20241002-PI214568-00327-1

PATIENT
  Age: 23 Year
  Sex: Male

DRUGS (2)
  1. ARIPIPRAZOLE [Suspect]
     Active Substance: ARIPIPRAZOLE
     Indication: Bipolar disorder
     Dosage: UP TO 10 MG/DAY
  2. VALPROATE SODIUM [Suspect]
     Active Substance: VALPROATE SODIUM
     Indication: Bipolar disorder
     Dosage: UP TO 1500 MG/DAY

REACTIONS (3)
  - Diarrhoea haemorrhagic [Unknown]
  - Gastrointestinal sounds abnormal [Unknown]
  - Epistaxis [Unknown]
